FAERS Safety Report 14131907 (Version 4)
Quarter: 2018Q1

REPORT INFORMATION
  Report Type: Report from Study
  Country: US (occurrence: US)
  Receive Date: 20171026
  Receipt Date: 20180125
  Transmission Date: 20180508
  Serious: No
  Sender: FDA-Public Use
  Company Number: US-AMGEN-USASL2017129293

PATIENT
  Age: 65 Year
  Sex: Female
  Weight: 96.15 kg

DRUGS (2)
  1. REPATHA [Suspect]
     Active Substance: EVOLOCUMAB
     Indication: HYPERLIPIDAEMIA
  2. REPATHA [Suspect]
     Active Substance: EVOLOCUMAB
     Indication: HYPERCHOLESTEROLAEMIA
     Dosage: 140 MG, Q2WK
     Route: 058
     Dates: start: 20160615, end: 20160711

REACTIONS (3)
  - Influenza [Recovered/Resolved]
  - Somnolence [Recovered/Resolved]
  - Speech disorder [Recovering/Resolving]

NARRATIVE: CASE EVENT DATE: 20160615
